FAERS Safety Report 7379074-4 (Version None)
Quarter: 2011Q1

REPORT INFORMATION
  Report Type: 
  Country: None (occurrence: None)
  Receive Date: 20110328
  Receipt Date: 20110315
  Transmission Date: 20110831
  Serious: Yes (Hospitalization)
  Sender: FDA-Public Use
  Company Number: US-ELI_LILLY_AND_COMPANY-US201007000906

PATIENT
  Sex: Female

DRUGS (7)
  1. PREDNISONE [Concomitant]
  2. ATIVAN [Concomitant]
  3. FORTEO [Suspect]
     Indication: OSTEOPOROSIS
     Dosage: 20 UG, DAILY (1/D)
     Route: 058
     Dates: start: 20100601
  4. SPIRIVA [Concomitant]
  5. FORTEO [Suspect]
     Dosage: 20 UG, DAILY (1/D)
     Dates: end: 20110106
  6. ALBUTEROL [Concomitant]
  7. FORTEO [Suspect]
     Dosage: 20 UG, DAILY (1/D)

REACTIONS (4)
  - BRONCHITIS [None]
  - INJECTION SITE HAEMORRHAGE [None]
  - CHRONIC OBSTRUCTIVE PULMONARY DISEASE [None]
  - INJECTION SITE HAEMATOMA [None]
